FAERS Safety Report 17265585 (Version 2)
Quarter: 2020Q1

REPORT INFORMATION
  Report Type: Report from Study
  Country: MX (occurrence: MX)
  Receive Date: 20200114
  Receipt Date: 20200319
  Transmission Date: 20200409
  Serious: Yes (Death, Life-Threatening, Other)
  Sender: FDA-Public Use
  Company Number: MX-BRISTOL-MYERS SQUIBB COMPANY-BMS-2020-002633

PATIENT
  Age: 63 Year
  Sex: Female

DRUGS (1)
  1. ABATACEPT [Suspect]
     Active Substance: ABATACEPT
     Indication: RHEUMATOID ARTHRITIS
     Dosage: 750 MILLIGRAM, QMO
     Route: 042
     Dates: start: 20110315

REACTIONS (2)
  - Myocardial infarction [Fatal]
  - Off label use [Unknown]

NARRATIVE: CASE EVENT DATE: 20191208
